FAERS Safety Report 7275144-X (Version None)
Quarter: 2011Q1

REPORT INFORMATION
  Report Type: 
  Country: None (occurrence: None)
  Receive Date: 20110204
  Receipt Date: 20110124
  Transmission Date: 20110831
  Serious: Yes (Hospitalization)
  Sender: FDA-Public Use
  Company Number: PHHY2011GB05987

PATIENT
  Age: 32 Year
  Sex: Female

DRUGS (4)
  1. CARBAMAZEPINE [Suspect]
     Indication: ANXIETY
     Dosage: UNK
  2. CARBAMAZEPINE [Suspect]
     Indication: EPILEPSY
  3. ANTIBIOTICS [Concomitant]
     Dosage: UNK
     Route: 042
  4. ANAESTHETICS [Concomitant]
     Dosage: UNK

REACTIONS (14)
  - STAPHYLOCOCCUS TEST POSITIVE [None]
  - ERYTHEMA [None]
  - PAIN [None]
  - DYSMENORRHOEA [None]
  - TOXIC EPIDERMAL NECROLYSIS [None]
  - STEVENS-JOHNSON SYNDROME [None]
  - VAGINAL DISORDER [None]
  - RASH GENERALISED [None]
  - MUSCLE SPASMS [None]
  - BLISTER [None]
  - VAGINAL DISCHARGE [None]
  - VULVOVAGINAL ADHESION [None]
  - EYE PAIN [None]
  - EYE PRURITUS [None]
